FAERS Safety Report 17809094 (Version 2)
Quarter: 2020Q2

REPORT INFORMATION
  Report Type: Spontaneous
  Country: US (occurrence: US)
  Receive Date: 20200520
  Receipt Date: 20200604
  Transmission Date: 20200714
  Serious: Yes (Hospitalization, Other)
  Sender: FDA-Public Use
  Company Number: US-PFIZER INC-2019357457

PATIENT
  Age: 51 Year
  Sex: Female
  Weight: 105.23 kg

DRUGS (12)
  1. LEVOTHYROXINE. [Concomitant]
     Active Substance: LEVOTHYROXINE
     Dosage: 150 UG, 1X/DAY (1 TABLET AT NIGHT)
     Route: 048
  2. LYRICA [Suspect]
     Active Substance: PREGABALIN
     Indication: PAIN
     Dosage: 200 MG, 1X/DAY (EVERY NIGHT AT BEDTIME)
     Route: 048
     Dates: start: 2015
  3. LYRICA [Suspect]
     Active Substance: PREGABALIN
     Indication: NEUROPATHY PERIPHERAL
  4. SERTRALINE [Concomitant]
     Active Substance: SERTRALINE HYDROCHLORIDE
     Dosage: 75 MG, 1X/DAY (3 TABLETS OF 25MG TABLETS AT NIGHT)
     Route: 048
  5. MIDODRINE [Concomitant]
     Active Substance: MIDODRINE
     Dosage: 5 MG (ONE OR TWO IN THE MORNING BEFORE DIALYSIS AND THEN ONE TABLET MID WAY THROUGH DIALYSIS)
  6. NOVOLOG [Concomitant]
     Active Substance: INSULIN ASPART
     Dosage: UNK (DOSE PER SLIDING SCALE)
  7. LEVEMIR [Concomitant]
     Active Substance: INSULIN DETEMIR
     Dosage: 28 IU, 1X/DAY (28 UNITS IN THE MORNING)
  8. ASPIRIN [ACETYLSALICYLIC ACID] [Concomitant]
     Active Substance: ASPIRIN
     Dosage: 325 MG, 1X/DAY (1 TABLET AT BEDTIME)
     Route: 048
  9. ATORVASTATIN [Concomitant]
     Active Substance: ATORVASTATIN
     Dosage: 40 MG, 1X/DAY (1 TABLET AT NIGHT)
     Route: 048
  10. SERTRALINE [Concomitant]
     Active Substance: SERTRALINE HYDROCHLORIDE
     Dosage: 50 MG, 1X/DAY (1 TABLET AT NIGHT)
     Route: 048
  11. SODIUM BICARBONATE. [Concomitant]
     Active Substance: SODIUM BICARBONATE
     Dosage: 650 MG, 1X/DAY (325MG TABLET, 2 TABLETS AT NIGHT)
     Route: 048
  12. VELTASSA [Concomitant]
     Active Substance: PATIROMER
     Dosage: 16.8 G, 1X/DAY (16.8 GRAM POWDER IN A PACK, 1 PACK AT NIGHT)
     Route: 048

REACTIONS (2)
  - Blindness [Unknown]
  - Aortic stenosis [Recovered/Resolved]

NARRATIVE: CASE EVENT DATE: 2019
